FAERS Safety Report 5364475-6 (Version None)
Quarter: 2007Q2

REPORT INFORMATION
  Report Type: 
  Country: None (occurrence: None)
  Receive Date: 20070611
  Receipt Date: 20061120
  Transmission Date: 20071010
  Serious: Yes (Other)
  Sender: FDA-Public Use
  Company Number: USA-2006-0025786

PATIENT
  Sex: Female

DRUGS (1)
  1. OXYCONTIN [Suspect]
     Indication: DRUG ABUSER

REACTIONS (9)
  - BURNOUT SYNDROME [None]
  - DRUG ABUSER [None]
  - DRUG DEPENDENCE [None]
  - EUPHORIC MOOD [None]
  - INSOMNIA [None]
  - INTENTIONAL OVERDOSE [None]
  - MALAISE [None]
  - SOMNOLENCE [None]
  - WEIGHT DECREASED [None]
